FAERS Safety Report 14655599 (Version 1)
Quarter: 2018Q1

REPORT INFORMATION
  Report Type: Spontaneous
  Country: US (occurrence: US)
  Receive Date: 20180319
  Receipt Date: 20180319
  Transmission Date: 20180509
  Serious: No
  Sender: FDA-Public Use
  Company Number: US-TEVA-751170ACC

PATIENT
  Sex: Female

DRUGS (2)
  1. BUPREN/NALOX [Suspect]
     Active Substance: BUPRENORPHINE\NALOXONE
  2. BUPREN/NALOX [Suspect]
     Active Substance: BUPRENORPHINE\NALOXONE
     Indication: PAIN
     Dosage: DOSE STRENGTH:  8/2 MG

REACTIONS (3)
  - Wrong technique in product usage process [Unknown]
  - Product use issue [Unknown]
  - Peripheral swelling [Not Recovered/Not Resolved]

NARRATIVE: CASE EVENT DATE: 20170309
